FAERS Safety Report 14980363 (Version 1)
Quarter: 2018Q2

REPORT INFORMATION
  Report Type: Spontaneous
  Country: ES (occurrence: ES)
  Receive Date: 20180606
  Receipt Date: 20180606
  Transmission Date: 20180711
  Serious: Yes (Other)
  Sender: FDA-Public Use
  Company Number: ES-ELI_LILLY_AND_COMPANY-ES201805014656

PATIENT
  Age: 36 Year
  Sex: Female

DRUGS (2)
  1. CYMBALTA [Suspect]
     Active Substance: DULOXETINE HYDROCHLORIDE
     Indication: DEPRESSION
     Dosage: 30 MG, UNKNOWN
     Route: 065
     Dates: start: 20180504
  2. CYMBALTA [Suspect]
     Active Substance: DULOXETINE HYDROCHLORIDE
     Indication: ANXIETY
     Dosage: 60 MG, UNKNOWN
     Route: 065
     Dates: end: 20180525

REACTIONS (12)
  - Weight decreased [Unknown]
  - Insomnia [Unknown]
  - Tooth infection [Unknown]
  - Tooth fracture [Unknown]
  - Musculoskeletal stiffness [Unknown]
  - Bruxism [Unknown]
  - Fall [Unknown]
  - Brain hypoxia [Unknown]
  - Dizziness [Recovering/Resolving]
  - Decreased appetite [Unknown]
  - Toothache [Unknown]
  - Loose tooth [Unknown]

NARRATIVE: CASE EVENT DATE: 201805
